FAERS Safety Report 17734029 (Version 2)
Quarter: 2020Q2

REPORT INFORMATION
  Report Type: Spontaneous
  Country: US (occurrence: US)
  Receive Date: 20200501
  Receipt Date: 20200630
  Transmission Date: 20200714
  Serious: No
  Sender: FDA-Public Use
  Company Number: US-PFIZER INC-2020081266

PATIENT
  Age: 65 Year
  Sex: Female
  Weight: 85 kg

DRUGS (20)
  1. DOCETAXEL ACCORD [Suspect]
     Active Substance: DOCETAXEL
     Indication: BREAST CANCER STAGE II
     Dosage: 140 MG, CYCLIC (SIX CYCLES, EVERY THREE WEEKS)
     Dates: start: 20131021, end: 20140217
  2. GABAPENTIN. [Concomitant]
     Active Substance: GABAPENTIN
     Dosage: 600 MG
     Dates: start: 20121004, end: 20181004
  3. POT CHLORIDE ER [Concomitant]
     Dosage: 10 MEQ
     Dates: start: 20130521, end: 20150611
  4. ABILIFY [Concomitant]
     Active Substance: ARIPIPRAZOLE
     Dosage: 10 MG
     Dates: start: 20101123, end: 20161130
  5. AMLODIPINE [Concomitant]
     Active Substance: AMLODIPINE BESYLATE
     Dosage: 5 MG
     Dates: start: 20110808, end: 20140529
  6. LOSARTAN. [Concomitant]
     Active Substance: LOSARTAN
     Dosage: UNK
  7. NEOSAR [Concomitant]
     Active Substance: CYCLOPHOSPHAMIDE
     Indication: CHEMOTHERAPY
     Dosage: UNK
  8. BENICAR HCT [Concomitant]
     Active Substance: HYDROCHLOROTHIAZIDE\OLMESARTAN MEDOXOMIL
     Dosage: 40-12.5 MG
     Dates: start: 20101123, end: 20140319
  9. OMEPRAZOLE. [Concomitant]
     Active Substance: OMEPRAZOLE
     Dosage: UNK
  10. CYTOXAN [Concomitant]
     Active Substance: CYCLOPHOSPHAMIDE
     Indication: CHEMOTHERAPY
     Dosage: 1128 MG
  11. METFORMIN [Concomitant]
     Active Substance: METFORMIN HYDROCHLORIDE
     Dosage: 500 MG
     Dates: start: 20070111, end: 20180327
  12. DEXILANT [Concomitant]
     Active Substance: DEXLANSOPRAZOLE
     Dosage: 60 MG
     Dates: start: 20100429, end: 20161102
  13. LETROZOLE. [Concomitant]
     Active Substance: LETROZOLE
     Dosage: UNK
  14. GLIPIZIDE. [Concomitant]
     Active Substance: GLIPIZIDE
     Dosage: 10 MG
     Dates: start: 20130717, end: 20170614
  15. HYOMAX-SR [Concomitant]
     Active Substance: HYOSCYAMINE SULFATE
     Dosage: 0.375 MG
     Dates: start: 20100201, end: 20170418
  16. VENLAFAXINE [Concomitant]
     Active Substance: VENLAFAXINE HYDROCHLORIDE
     Dosage: 100 MG
     Dates: start: 20110701, end: 20140314
  17. ROPINIROLE. [Concomitant]
     Active Substance: ROPINIROLE
     Dosage: 0.5 MG
     Dates: start: 20121017, end: 20180827
  18. ATORVASTATIN [Concomitant]
     Active Substance: ATORVASTATIN
     Dosage: 10 MG
     Dates: start: 20130918, end: 20180824
  19. DOCETAXEL. [Suspect]
     Active Substance: DOCETAXEL
     Indication: BREAST CANCER STAGE II
     Dosage: 140 MG, CYCLIC (SIX CYCLES, EVERY THREE WEEKS)
     Dates: start: 20131021, end: 20140217
  20. METOPROLOL. [Concomitant]
     Active Substance: METOPROLOL
     Dosage: 25 MG
     Dates: start: 20110623, end: 20180807

REACTIONS (5)
  - Hair texture abnormal [Not Recovered/Not Resolved]
  - Hair colour changes [Not Recovered/Not Resolved]
  - Madarosis [Not Recovered/Not Resolved]
  - Alopecia [Not Recovered/Not Resolved]
  - Hair disorder [Not Recovered/Not Resolved]

NARRATIVE: CASE EVENT DATE: 20131028
